FAERS Safety Report 8507949-9 (Version None)
Quarter: 2012Q3

REPORT INFORMATION
  Report Type: 
  Country: None (occurrence: None)
  Receive Date: 20120713
  Receipt Date: 20120629
  Transmission Date: 20120928
  Serious: Yes (Death, Hospitalization)
  Sender: FDA-Public Use
  Company Number: BE-GENZYME-CLOF-1002199

PATIENT
  Sex: Female
  Weight: 100 kg

DRUGS (1)
  1. CLOFARABINE [Suspect]
     Indication: ACUTE MYELOMONOCYTIC LEUKAEMIA
     Dosage: 40 MG/M2, QD
     Route: 042

REACTIONS (7)
  - ATRIAL FIBRILLATION [None]
  - TUMOUR LYSIS SYNDROME [None]
  - CARDIAC FAILURE [None]
  - HEPATIC FAILURE [None]
  - RENAL FAILURE [None]
  - RESPIRATORY FAILURE [None]
  - SEPSIS [None]
